FAERS Safety Report 20957929 (Version 1)
Quarter: 2022Q2

REPORT INFORMATION
  Report Type: Spontaneous
  Country: None (occurrence: US)
  Receive Date: 20220614
  Receipt Date: 20220614
  Transmission Date: 20220720
  Serious: No
  Sender: FDA-Public Use
  Company Number: US-Nostrum Laboratories, Inc.-2129851

PATIENT
  Age: 72 Year
  Sex: Female

DRUGS (3)
  1. HYDROCODONE BITARTRATE AND IBUPROFEN [Suspect]
     Active Substance: HYDROCODONE BITARTRATE\IBUPROFEN
     Indication: Product used for unknown indication
     Route: 048
  2. DULOXETINE [Concomitant]
     Active Substance: DULOXETINE
     Route: 048
  3. AMLODIPINE [Concomitant]
     Active Substance: AMLODIPINE BESYLATE
     Route: 048

REACTIONS (6)
  - Confusional state [Unknown]
  - Depression [Unknown]
  - Feeling of despair [Unknown]
  - Thinking abnormal [Unknown]
  - Dissociative disorder [Unknown]
  - Drug dependence [Unknown]
